FAERS Safety Report 9826152 (Version 1)
Quarter: 2013Q4

REPORT INFORMATION
  Report Type: Spontaneous
  Country: NL (occurrence: None)
  Receive Date: 20131112
  Receipt Date: 20131112
  Transmission Date: 20140711
  Serious: Yes (Other)
  Sender: FDA-Public Use
  Company Number: 2013-01621

PATIENT
  Age: 49 Year
  Sex: Female

DRUGS (3)
  1. LISINOPRIL (UNKNOWN) (LISINOPRIL) [Suspect]
     Indication: HYPERTENSION
  2. LEVOTIRACETAM (UNKNOWN (LEVETIRACETAM) [Concomitant]
  3. NITRAZEPAM (UNKNOWN) [Concomitant]

REACTIONS (1)
  - Angioedema [None]
